FAERS Safety Report 4330882-3 (Version None)
Quarter: 2004Q1

REPORT INFORMATION
  Report Type: 
  Country: None (occurrence: None)
  Receive Date: 20040331
  Receipt Date: 20040323
  Transmission Date: 20041129
  Serious: Yes (Death)
  Sender: FDA-Public Use
  Company Number: 2004205119US

PATIENT
  Age: 58 Year
  Sex: Male

DRUGS (1)
  1. INSPRA [Suspect]

REACTIONS (1)
  - SUDDEN DEATH [None]
